FAERS Safety Report 5292612-0 (Version None)
Quarter: 2007Q2

REPORT INFORMATION
  Report Type: 
  Country: None (occurrence: None)
  Receive Date: 20070404
  Receipt Date: 20070321
  Transmission Date: 20071010
  Serious: Yes (Hospitalization)
  Sender: FDA-Public Use
  Company Number: 2007000582

PATIENT
  Age: 74 Year
  Sex: Female

DRUGS (5)
  1. MACUGEN [Suspect]
     Dosage: UNK, INTRA-VITREAL
  2. INSULIN (INSULIN) [Concomitant]
  3. ALLOPURINOL [Concomitant]
  4. PANTOPRAZOLE SODIUM [Concomitant]
  5. CLOPIDOGREL [Concomitant]

REACTIONS (1)
  - PANCYTOPENIA [None]
